FAERS Safety Report 16397320 (Version 8)
Quarter: 2020Q2

REPORT INFORMATION
  Report Type: Spontaneous
  Country: ES (occurrence: ES)
  Receive Date: 20190606
  Receipt Date: 20200528
  Transmission Date: 20200713
  Serious: Yes (Other)
  Sender: FDA-Public Use
  Company Number: ES-AUROBINDO-AUR-APL-2019-031230

PATIENT
  Age: 61 Year
  Sex: Female

DRUGS (9)
  1. TRANKIMAZIN [Suspect]
     Active Substance: ALPRAZOLAM
     Indication: PRODUCT USED FOR UNKNOWN INDICATION
     Dosage: UNK, 3 TIMES A DAY 0.5-0.5-0.5
     Route: 065
  2. BARICITINIB [Suspect]
     Active Substance: BARICITINIB
     Indication: RHEUMATOID ARTHRITIS
     Dosage: 4 MILLIGRAM, ONCE A DAY (MORNING)
     Route: 048
     Dates: start: 20190419
  3. ARAVA [Concomitant]
     Active Substance: LEFLUNOMIDE
     Indication: PRODUCT USED FOR UNKNOWN INDICATION
     Dosage: UNK
     Route: 065
  4. CORTISONE [Concomitant]
     Active Substance: CORTISONE
     Indication: PRODUCT USED FOR UNKNOWN INDICATION
     Dosage: UNK
     Route: 065
  5. BARICITINIB [Suspect]
     Active Substance: BARICITINIB
     Dosage: 2 MILLIGRAM, ONCE A DAY (MORNING)
     Route: 048
  6. DULOXETINE. [Suspect]
     Active Substance: DULOXETINE
     Indication: PRODUCT USED FOR UNKNOWN INDICATION
     Dosage: UNK
     Route: 065
  7. LYRICA [Suspect]
     Active Substance: PREGABALIN
     Indication: PRODUCT USED FOR UNKNOWN INDICATION
     Dosage: UNK
     Route: 065
  8. PROLIA [Concomitant]
     Active Substance: DENOSUMAB
     Indication: CALCIUM DEFICIENCY
     Dosage: UNK
     Route: 065
  9. HIDROFEROL [Concomitant]
     Active Substance: CALCIFEDIOL
     Indication: VITAMIN D DECREASED
     Dosage: UNK
     Route: 065

REACTIONS (11)
  - Somnolence [Recovered/Resolved]
  - Feeling abnormal [Recovered/Resolved]
  - Hip fracture [Unknown]
  - Pain in extremity [Not Recovered/Not Resolved]
  - Product dose omission [Unknown]
  - Rheumatoid arthritis [Recovered/Resolved]
  - Mood altered [Unknown]
  - Anxiety [Not Recovered/Not Resolved]
  - Drug ineffective [Not Recovered/Not Resolved]
  - Insomnia [Recovered/Resolved]
  - Dizziness [Recovered/Resolved]
